FAERS Safety Report 4318810-8 (Version None)
Quarter: 2004Q1

REPORT INFORMATION
  Report Type: 
  Country: None (occurrence: None)
  Receive Date: 20040318
  Receipt Date: 20040311
  Transmission Date: 20041129
  Serious: Yes (Hospitalization)
  Sender: FDA-Public Use
  Company Number: FR-GLAXOSMITHKLINE-B0326490A

PATIENT
  Age: 56 Year
  Sex: Male

DRUGS (10)
  1. AGENERASE [Suspect]
     Indication: HIV INFECTION
     Dosage: 4UNIT TWICE PER DAY
     Route: 048
     Dates: start: 20030601
  2. EPIVIR [Suspect]
     Indication: HIV INFECTION
     Route: 048
     Dates: start: 19960828
  3. NORVIR [Suspect]
     Indication: HIV INFECTION
     Dosage: 1UNIT TWICE PER DAY
     Route: 048
     Dates: start: 19970609
  4. VIRAMUNE [Suspect]
     Indication: HIV INFECTION
     Dosage: 1UNIT TWICE PER DAY
     Route: 048
     Dates: start: 20030601
  5. VIREAD [Suspect]
     Indication: HIV INFECTION
     Dosage: 1UNIT PER DAY
     Route: 048
     Dates: start: 20030601
  6. FUZEON [Suspect]
     Indication: HIV INFECTION
     Dosage: 1UNIT TWICE PER DAY
     Route: 058
     Dates: start: 20030601
  7. CORTANCYL [Concomitant]
     Indication: MYOSITIS
     Route: 065
     Dates: end: 20040101
  8. PREVISCAN [Concomitant]
     Route: 065
     Dates: end: 20040101
  9. IMOVANE [Concomitant]
     Dosage: 1UNIT PER DAY
     Route: 048
  10. LEVOCARNIL [Concomitant]
     Dosage: 1UNIT PER DAY
     Route: 065

REACTIONS (1)
  - LUNG DISORDER [None]
